FAERS Safety Report 5778720-6 (Version None)
Quarter: 2008Q2

REPORT INFORMATION
  Report Type: 
  Country: None (occurrence: None)
  Receive Date: 20080619
  Receipt Date: 20080609
  Transmission Date: 20081010
  Serious: Yes (Hospitalization)
  Sender: FDA-Public Use
  Company Number: JP-ABBOTT-08P-087-0457734-00

PATIENT
  Age: 72 Year
  Sex: Male

DRUGS (7)
  1. LEUPLIN SR FOR INJECTION KIT 11.25 MG [Suspect]
     Indication: PROSTATE CANCER
     Route: 058
     Dates: start: 20060603, end: 20070210
  2. LANSOPRAZOLE [Concomitant]
     Indication: GASTRIC ULCER
     Route: 048
  3. NILVADIPINE [Concomitant]
     Indication: HYPERTENSION
     Route: 048
  4. SPIRONOLACTONE [Concomitant]
     Indication: HYPERTENSION
     Route: 048
  5. PRAVASTATIN SODIUM [Concomitant]
     Indication: HYPERLIPIDAEMIA
     Route: 048
  6. PHENYTOIN [Concomitant]
     Indication: EPILEPSY
     Route: 048
  7. WARFARIN SODIUM [Concomitant]
     Indication: CEREBRAL INFARCTION
     Route: 048

REACTIONS (1)
  - ARTERIOSCLEROSIS OBLITERANS [None]
